FAERS Safety Report 24263138 (Version 2)
Quarter: 2024Q3

REPORT INFORMATION
  Report Type: Spontaneous
  Country: US (occurrence: US)
  Receive Date: 20240829
  Receipt Date: 20240928
  Transmission Date: 20241017
  Serious: No
  Sender: JOHNSON AND JOHNSON
  Company Number: US-JNJFOC-20240849523

PATIENT
  Age: 69 Year
  Sex: Female

DRUGS (2)
  1. VISINE ALLERGY EYE RELIEF MULTI-ACTION [Suspect]
     Active Substance: NAPHAZOLINE HYDROCHLORIDE\PHENIRAMINE MALEATE
     Indication: Eye pruritus
     Dosage: USED ONLY 2 TIMES ON 2 SEPARATE DAYS
     Route: 047
     Dates: start: 20240809, end: 2024
  2. VISINE ALLERGY EYE RELIEF MULTI-ACTION [Suspect]
     Active Substance: NAPHAZOLINE HYDROCHLORIDE\PHENIRAMINE MALEATE
     Indication: Lacrimation increased

REACTIONS (2)
  - Eye irritation [Not Recovered/Not Resolved]
  - Eye pain [Not Recovered/Not Resolved]

NARRATIVE: CASE EVENT DATE: 20240809
